FAERS Safety Report 12944078 (Version 2)
Quarter: 2016Q4

REPORT INFORMATION
  Report Type: Report from Study
  Country: US (occurrence: US)
  Receive Date: 20161115
  Receipt Date: 20161207
  Transmission Date: 20170207
  Serious: Yes (Other)
  Sender: FDA-Public Use
  Company Number: US-GILEAD-2016-0242149

PATIENT
  Age: 85 Year
  Sex: Female

DRUGS (6)
  1. POTASSIUM [Concomitant]
     Active Substance: POTASSIUM
     Dosage: UNK
     Dates: end: 2016
  2. IDELALISIB [Suspect]
     Active Substance: IDELALISIB
     Indication: CHRONIC LYMPHOCYTIC LEUKAEMIA
     Dosage: 100 MG, BID
     Route: 048
     Dates: start: 20161102
  3. POTASSIUM [Concomitant]
     Active Substance: POTASSIUM
     Dosage: 10 MG, QD
     Dates: start: 20161201
  4. IDELALISIB [Suspect]
     Active Substance: IDELALISIB
     Indication: SKIN CANCER
     Dosage: 100 MG, BID
     Route: 048
     Dates: start: 20160126, end: 20160614
  5. IDELALISIB [Suspect]
     Active Substance: IDELALISIB
     Dosage: 150 MG, BID
     Route: 048
     Dates: start: 20150901, end: 20151229
  6. RITUXAN [Concomitant]
     Active Substance: RITUXIMAB
     Dosage: UNK, Q2WK
     Route: 042

REACTIONS (5)
  - Central venous catheterisation [Unknown]
  - Skin graft [Unknown]
  - Basal cell carcinoma [Unknown]
  - Dysphonia [Recovering/Resolving]
  - Oropharyngeal pain [Unknown]

NARRATIVE: CASE EVENT DATE: 2016
